FAERS Safety Report 4298500-0 (Version None)
Quarter: 2004Q1

REPORT INFORMATION
  Report Type: 
  Country: None (occurrence: None)
  Receive Date: 20040218
  Receipt Date: 20031117
  Transmission Date: 20041129
  Serious: Yes (Other)
  Sender: FDA-Public Use
  Company Number: US-BRISTOL-MYERS SQUIBB COMPANY-12443313

PATIENT
  Age: 45 Year
  Sex: Female

DRUGS (6)
  1. STADOL [Suspect]
     Indication: MIGRAINE
  2. STADOL [Suspect]
     Indication: MIGRAINE
     Route: 030
  3. DEMEROL [Concomitant]
     Route: 030
  4. IMITREX [Concomitant]
     Route: 030
  5. NUBAIN [Concomitant]
     Route: 030
  6. PHENERGAN [Concomitant]
     Route: 030

REACTIONS (3)
  - DEPENDENCE [None]
  - HEADACHE [None]
  - PANIC DISORDER [None]
